FAERS Safety Report 15943098 (Version 8)
Quarter: 2021Q3

REPORT INFORMATION
  Report Type: Spontaneous
  Country: IE (occurrence: IE)
  Receive Date: 20190210
  Receipt Date: 20210719
  Transmission Date: 20211014
  Serious: Yes (Death, Hospitalization, Other)
  Sender: FDA-Public Use
  Company Number: IE-009507513-1902IRL001179

PATIENT
  Age: 66 Year
  Sex: Female

DRUGS (12)
  1. KEYTRUDA [Suspect]
     Active Substance: PEMBROLIZUMAB
     Indication: NON-SMALL CELL LUNG CANCER METASTATIC
     Dosage: BN: 7SNL82402 EXP:30/11/2018
     Route: 042
     Dates: start: 20180404
  2. KEYTRUDA [Suspect]
     Active Substance: PEMBROLIZUMAB
     Dosage: BN: 7302616005 EXP:31/08/2019
     Route: 042
     Dates: start: 20180926
  3. KEYTRUDA [Suspect]
     Active Substance: PEMBROLIZUMAB
     Dosage: BN: 7302615006 EXP:31/08/2019
     Route: 042
     Dates: start: 20181121
  4. KEYTRUDA [Suspect]
     Active Substance: PEMBROLIZUMAB
     Dosage: BN: 7302601012 EXP:31/12/2018
     Route: 042
     Dates: start: 20180905
  5. KEYTRUDA [Suspect]
     Active Substance: PEMBROLIZUMAB
     Dosage: BN: 7302616005 EXP:31/08/2019
     Route: 042
     Dates: start: 20181017
  6. KEYTRUDA [Suspect]
     Active Substance: PEMBROLIZUMAB
     Indication: NON-SMALL CELL LUNG CANCER STAGE IV
     Dosage: 1,UNK, Q3W, 5 CYCLES
     Route: 042
     Dates: start: 2018, end: 2018
  7. KEYTRUDA [Suspect]
     Active Substance: PEMBROLIZUMAB
     Dosage: BN 7SNL82201 EXP:31/10/2018
     Route: 042
     Dates: start: 20180404
  8. KEYTRUDA [Suspect]
     Active Substance: PEMBROLIZUMAB
     Dosage: BN: 7SNL82402 EXP:30/11/2018
     Route: 042
     Dates: start: 20180725
  9. KEYTRUDA [Suspect]
     Active Substance: PEMBROLIZUMAB
     Dosage: BN: 7302601012 EXP:31/12/2018
     Route: 042
     Dates: start: 20180815
  10. KEYTRUDA [Suspect]
     Active Substance: PEMBROLIZUMAB
     Dosage: UNK
  11. KEYTRUDA [Suspect]
     Active Substance: PEMBROLIZUMAB
     Dosage: 200 MILLIGRAM, Q3W
     Route: 042
  12. ENSURE [NUTRIENTS NOS] [Concomitant]
     Indication: NUTRITIONAL SUPPLEMENTATION
     Dosage: UNK
     Dates: start: 201811

REACTIONS (28)
  - Renal failure [Fatal]
  - Diabetic ketoacidosis [Fatal]
  - Hypothermia [Fatal]
  - Choroid plexus papilloma [Fatal]
  - Interstitial lung disease [Fatal]
  - Loss of consciousness [Fatal]
  - Rhabdomyolysis [Fatal]
  - Renal tubular necrosis [Fatal]
  - Myocardial ischaemia [Fatal]
  - Pulmonary congestion [Fatal]
  - Contusion [Fatal]
  - Nausea [Fatal]
  - Acute kidney injury [Fatal]
  - Pulmonary mass [Fatal]
  - Hypophagia [Fatal]
  - Hepatic steatosis [Fatal]
  - Aortic arteriosclerosis [Fatal]
  - Pulmonary oedema [Fatal]
  - Gastric ulcer [Not Recovered/Not Resolved]
  - Oedema peripheral [Fatal]
  - Acidosis [Fatal]
  - Unresponsive to stimuli [Fatal]
  - Vomiting [Fatal]
  - Blister [Fatal]
  - Haemangioma of liver [Fatal]
  - Malaise [Fatal]
  - Congestive hepatopathy [Fatal]
  - Emphysema [Fatal]

NARRATIVE: CASE EVENT DATE: 2018
